FAERS Safety Report 9804092 (Version 2)
Quarter: 2014Q1

REPORT INFORMATION
  Report Type: Spontaneous
  Country: US (occurrence: US)
  Receive Date: 20140108
  Receipt Date: 20140115
  Transmission Date: 20141002
  Serious: Yes (Other)
  Sender: FDA-Public Use
  Company Number: US-PFIZER INC-2014004486

PATIENT
  Age: 81 Year
  Sex: Female
  Weight: 74.83 kg

DRUGS (6)
  1. PREMARIN [Suspect]
     Indication: HOT FLUSH
     Dosage: 0.625 MG, DAILY
     Route: 048
  2. PREMARIN [Suspect]
     Dosage: 0.3 MG, DAILY
     Route: 048
  3. PREMARIN [Suspect]
     Dosage: UNK
     Route: 048
     Dates: end: 201312
  4. MAXZIDE [Concomitant]
     Indication: BLOOD PRESSURE ABNORMAL
     Dosage: 25 MG, DAILY
  5. SYNTHROID [Concomitant]
     Indication: THYROID DISORDER
     Dosage: 75 UG, DAILY
  6. OMEPRAZOLE [Concomitant]
     Dosage: 10 MG, DAILY

REACTIONS (1)
  - Retinal vein occlusion [Unknown]
